FAERS Safety Report 6639066-7 (Version None)
Quarter: 2010Q1

REPORT INFORMATION
  Report Type: 
  Country: None (occurrence: None)
  Receive Date: 20100317
  Receipt Date: 20100308
  Transmission Date: 20100710
  Serious: Yes (Other)
  Sender: FDA-Public Use
  Company Number: DE-GENENTECH-299249

PATIENT
  Age: 66 Year
  Sex: Female

DRUGS (5)
  1. RITUXIMAB [Suspect]
     Indication: RHEUMATOID ARTHRITIS
     Dosage: 2000 MG, UNK
     Route: 042
     Dates: start: 20070111, end: 20080510
  2. RITUXIMAB [Suspect]
     Dosage: 1000 MG, UNK
     Route: 042
     Dates: start: 20090612
  3. METHOTREXAT [Suspect]
     Indication: RHEUMATOID ARTHRITIS
     Dosage: 15 MG, UNK
     Route: 058
     Dates: start: 20070501, end: 20090304
  4. METHOTREXAT [Suspect]
     Dosage: UNK
     Route: 048
     Dates: start: 20040301, end: 20070401
  5. METHOTREXAT [Suspect]
     Dosage: UNK
     Route: 065
     Dates: start: 19920101, end: 20021201

REACTIONS (1)
  - RENAL IMPAIRMENT [None]
